FAERS Safety Report 6832336-9 (Version None)
Quarter: 2010Q3

REPORT INFORMATION
  Report Type: 
  Country: None (occurrence: None)
  Receive Date: 20100712
  Receipt Date: 20100630
  Transmission Date: 20110219
  Serious: Yes (Other)
  Sender: FDA-Public Use
  Company Number: DE-PFIZER INC-2010066568

PATIENT
  Age: 82 Year
  Sex: Female
  Weight: 57.8 kg

DRUGS (1)
  1. LYRICA [Suspect]
     Dosage: 25 MG, 4X/DAY
     Route: 048
     Dates: start: 20080816

REACTIONS (2)
  - CONDITION AGGRAVATED [None]
  - DYSPHAGIA [None]
